FAERS Safety Report 7192554-X (Version None)
Quarter: 2010Q4

REPORT INFORMATION
  Report Type: 
  Country: None (occurrence: None)
  Receive Date: 20101223
  Receipt Date: 20100825
  Transmission Date: 20110411
  Serious: No
  Sender: FDA-Public Use
  Company Number: US-AMGEN-KDL433827

PATIENT

DRUGS (12)
  1. ENBREL [Suspect]
     Indication: PRODUCT USED FOR UNKNOWN INDICATION
     Dosage: 50 MG, QWK
     Route: 058
  2. LORSARTAN POTASSIUM HYDROCHLORIDE [Concomitant]
     Dosage: UNK UNK, UNK
  3. PREDNISONE [Concomitant]
     Dosage: 1 MG, UNK
  4. CITALOPRAM HYDROBROMIDE [Concomitant]
     Dosage: 10 MG, UNK
  5. ALBUTEROL SULFATE [Concomitant]
     Dosage: 90 A?G, UNK
  6. POTASSIUM CHLORIDE [Concomitant]
     Dosage: 10 MEQ, UNK
  7. CARBINOXAMINE MALEATE/PARACETAMOL/PHENYLEPHRINE HYDROCHLORIDE [Concomitant]
     Dosage: 4 MG, UNK
  8. MELOXICAM [Concomitant]
     Dosage: 7.5 MG, UNK
  9. ERGOCALCIFEROL [Concomitant]
     Dosage: 400 IU, UNK
  10. ESZOPICLONE [Concomitant]
     Dosage: 1 MG, UNK
  11. CYCLOBENZAPRINE HCL [Concomitant]
     Dosage: 5 MG, UNK
  12. FOLIC ACID [Concomitant]
     Dosage: 200 A?G, UNK

REACTIONS (2)
  - PHARYNGITIS STREPTOCOCCAL [None]
  - SUBCUTANEOUS ABSCESS [None]
